FAERS Safety Report 17802184 (Version 1)
Quarter: 2020Q2

REPORT INFORMATION
  Report Type: Spontaneous
  Country: US (occurrence: US)
  Receive Date: 20200519
  Receipt Date: 20200519
  Transmission Date: 20200714
  Serious: Yes (Other)
  Sender: FDA-Public Use
  Company Number: US-PFIZER INC-2018217380

PATIENT
  Age: 75 Year
  Sex: Female

DRUGS (10)
  1. LYRICA [Suspect]
     Active Substance: PREGABALIN
     Dosage: 100 MG, 2X/DAY (TAKE 1 CAP BY MOUTH EVERY 12 HOURS)
     Route: 048
     Dates: start: 20191220
  2. LANTUS [Concomitant]
     Active Substance: INSULIN GLARGINE
     Dosage: 40 IU, 1X/DAY (INJECT 40 UNITS BY SUBCUTANEOUS INJECTION AT BEDTIME), LANTUS SOLOSTAR 100 UNIT/ML (3
     Route: 058
     Dates: start: 20170922
  3. LYRICA [Suspect]
     Active Substance: PREGABALIN
     Indication: DIABETIC NEPHROPATHY
     Dosage: 75 MG, 2X/DAY
     Route: 048
     Dates: start: 20180508, end: 20180524
  4. INSULIN [Concomitant]
     Active Substance: INSULIN NOS
     Dosage: UNK
  5. LYRICA [Suspect]
     Active Substance: PREGABALIN
     Dosage: 75 MG, 2X/DAY
     Route: 048
     Dates: start: 20180524
  6. ZOCOR [Concomitant]
     Active Substance: SIMVASTATIN
     Dosage: 10 MG, 2X/DAY
     Route: 048
     Dates: start: 20180207
  7. LYRICA [Suspect]
     Active Substance: PREGABALIN
     Dosage: 100 MG, 3X/DAY (TAKE 1 CAP BY MOUTH 3 TIMES DAILY)
     Route: 048
     Dates: start: 20200304
  8. TRULICITY [Concomitant]
     Active Substance: DULAGLUTIDE
     Dosage: 1.5 MG, WEEKLY(INJECT 1.5MG BY SUBCUTANEOUS INJECTION EVERY 7DAYS)/ 1.5MG /0.5ML PEN INJECTOR
     Route: 058
     Dates: start: 20180518
  9. LYRICA [Suspect]
     Active Substance: PREGABALIN
     Dosage: 100 MG, 3X/DAY (TAKE 1 CAP BY MOUTH 3 TIMES DAILY)
     Route: 048
  10. MOTRIN [Concomitant]
     Active Substance: IBUPROFEN
     Indication: PAIN
     Dosage: 200 MG, AS NEEDED (200MG BY MOUTH EVERY SIX HOURS AS NEEDED FOR PAIN, MILD)
     Route: 048

REACTIONS (1)
  - Drug dependence [Unknown]
